FAERS Safety Report 8560610-7 (Version None)
Quarter: 2012Q3

REPORT INFORMATION
  Report Type: 
  Country: None (occurrence: None)
  Receive Date: 20120723
  Receipt Date: 20120720
  Transmission Date: 20120928
  Serious: Yes (Disabling)
  Sender: FDA-Public Use
  Company Number: SP05710

PATIENT
  Age: 70 Year
  Sex: Male
  Weight: 65 kg

DRUGS (12)
  1. NITROGLYCERIN [Concomitant]
  2. ITRACONAZOLE [Concomitant]
  3. ATORVASTATIN [Concomitant]
  4. CARBAZOCHROME [Concomitant]
  5. VISICOL [Suspect]
     Indication: BOWEL PREPARATION
     Dosage: (50 GM), ORAL
     Route: 048
     Dates: start: 20120418, end: 20120418
  6. LAFUTIDINE [Concomitant]
  7. DEXTROMETHORPHAN HYDROBROMIDE [Concomitant]
  8. VALSARTAN [Concomitant]
  9. ALLOPURINOL [Concomitant]
  10. TRANEXAMIC ACID [Concomitant]
  11. ASPIRIN [Concomitant]
  12. AMBROXOL [Concomitant]

REACTIONS (4)
  - ARTERIOSCLEROSIS [None]
  - WEIGHT INCREASED [None]
  - RENAL FAILURE ACUTE [None]
  - ACUTE PHOSPHATE NEPHROPATHY [None]
